FAERS Safety Report 22888275 (Version 4)
Quarter: 2023Q4

REPORT INFORMATION
  Report Type: Spontaneous
  Country: CA (occurrence: CA)
  Receive Date: 20230831
  Receipt Date: 20231109
  Transmission Date: 20240110
  Serious: Yes (Other)
  Sender: FDA-Public Use
  Company Number: CA-PFIZER INC-202300172121

PATIENT
  Age: 14 Year
  Sex: Male
  Weight: 65 kg

DRUGS (2)
  1. ABRILADA [Suspect]
     Active Substance: ADALIMUMAB-AFZB
     Indication: Colitis ulcerative
     Dosage: 1 DF, 160 MG ON WEEK 0,80 MG ON WEEK 2,THEN 40 MG EVERY 2 WEEKS,FIRST DOSE IN HOSPITAL,PREFILLED PEN
     Route: 042
     Dates: start: 20230420, end: 2023
  2. ABRILADA [Suspect]
     Active Substance: ADALIMUMAB-AFZB
     Dosage: UNK
     Dates: start: 20230810

REACTIONS (4)
  - Anal abscess [Recovering/Resolving]
  - Condition aggravated [Recovering/Resolving]
  - Drug ineffective [Unknown]
  - Off label use [Unknown]

NARRATIVE: CASE EVENT DATE: 20230101
